FAERS Safety Report 15941379 (Version 4)
Quarter: 2019Q3

REPORT INFORMATION
  Report Type: Spontaneous
  Country: US (occurrence: US)
  Receive Date: 20190208
  Receipt Date: 20190714
  Transmission Date: 20191004
  Serious: Yes (Other)
  Sender: FDA-Public Use
  Company Number: US-ASTRAZENECA-2019SE09865

PATIENT
  Age: 786 Month
  Sex: Male
  Weight: 73.9 kg

DRUGS (25)
  1. PRILOSEC OTC [Suspect]
     Active Substance: OMEPRAZOLE MAGNESIUM
     Route: 048
  2. DEXILANT [Suspect]
     Active Substance: DEXLANSOPRAZOLE
     Route: 065
  3. PROTONIX [Suspect]
     Active Substance: PANTOPRAZOLE SODIUM
     Indication: GASTROOESOPHAGEAL REFLUX DISEASE
     Route: 065
     Dates: start: 20150129, end: 20150228
  4. LORAZEPAM. [Concomitant]
     Active Substance: LORAZEPAM
  5. CIPROFLOXACIN. [Concomitant]
     Active Substance: CIPROFLOXACIN
  6. AMILORIDE [Concomitant]
     Active Substance: AMILORIDE
  7. FAMOTIDINE. [Concomitant]
     Active Substance: FAMOTIDINE
  8. ANUCORT-HC [Concomitant]
     Active Substance: HYDROCORTISONE ACETATE
  9. PREVACID [Suspect]
     Active Substance: LANSOPRAZOLE
     Route: 065
  10. EXCEDRIN [Concomitant]
     Active Substance: ACETAMINOPHEN\ASPIRIN\CAFFEINE
     Indication: HEADACHE
  11. MIRALAX [Concomitant]
     Active Substance: POLYETHYLENE GLYCOL 3350
     Indication: CONSTIPATION
  12. CLOBETASOL [Concomitant]
     Active Substance: CLOBETASOL
  13. MIRTAZAPINE. [Concomitant]
     Active Substance: MIRTAZAPINE
  14. BISACODYL. [Concomitant]
     Active Substance: BISACODYL
  15. BUPROPION. [Concomitant]
     Active Substance: BUPROPION
  16. FLUZONE [Concomitant]
     Active Substance: INFLUENZA A VIRUS A/CALIFORNIA/7/2009 X-179A (H1N1) ANTIGEN (FORMALDEHYDE INACTIVATED)\INFLUENZA A VIRUS A/VICTORIA/210/2009 X-187 (H3N2) ANTIGEN (FORMALDEHYDE INACTIVATED)\INFLUENZA B VIRUS B/BRISBANE/60/2008 ANTIGEN (FORMALDEHYDE INACTIVATED)
  17. NEXIUM [Suspect]
     Active Substance: ESOMEPRAZOLE MAGNESIUM
     Indication: GASTROOESOPHAGEAL REFLUX DISEASE
     Route: 048
     Dates: start: 20150303, end: 20150403
  18. PRILOSEC [Suspect]
     Active Substance: OMEPRAZOLE MAGNESIUM
     Route: 048
  19. PREVACID 24 HR [Suspect]
     Active Substance: LANSOPRAZOLE
     Route: 065
  20. ASPIRIN. [Concomitant]
     Active Substance: ASPIRIN
     Indication: NASOPHARYNGITIS
  21. NEXIUM [Suspect]
     Active Substance: ESOMEPRAZOLE MAGNESIUM
     Indication: GASTROOESOPHAGEAL REFLUX DISEASE
     Route: 048
     Dates: start: 20140219, end: 20150731
  22. NEXIUM 24HR [Suspect]
     Active Substance: ESOMEPRAZOLE MAGNESIUM
     Route: 048
  23. MELATONIN [Concomitant]
     Active Substance: MELATONIN
     Indication: INSOMNIA
  24. MULTIVITAMINS [Concomitant]
     Active Substance: VITAMINS
  25. ESCITALOPRAM [Concomitant]
     Active Substance: ESCITALOPRAM OXALATE

REACTIONS (5)
  - Rebound acid hypersecretion [Unknown]
  - Renal failure [Unknown]
  - Renal impairment [Not Recovered/Not Resolved]
  - Chronic kidney disease [Not Recovered/Not Resolved]
  - Renal injury [Unknown]

NARRATIVE: CASE EVENT DATE: 201505
